FAERS Safety Report 6464928-3 (Version None)
Quarter: 2009Q4

REPORT INFORMATION
  Report Type: 
  Country: None (occurrence: None)
  Receive Date: 20091201
  Receipt Date: 20091120
  Transmission Date: 20100525
  Serious: Yes (Hospitalization)
  Sender: FDA-Public Use
  Company Number: IT-BRISTOL-MYERS SQUIBB COMPANY-14640163

PATIENT
  Age: 50 Year
  Sex: Male

DRUGS (4)
  1. ERBITUX [Suspect]
     Indication: COLON CANCER STAGE IV
     Route: 042
     Dates: start: 20090111, end: 20090424
  2. CAMPTOSAR [Suspect]
     Indication: COLON CANCER STAGE IV
     Route: 042
     Dates: start: 20090111, end: 20090423
  3. OXALIPLATIN [Suspect]
     Indication: COLON CANCER STAGE IV
     Route: 042
     Dates: start: 20090111, end: 20090424
  4. XELODA [Suspect]
     Indication: COLON CANCER STAGE IV
     Route: 042
     Dates: start: 20090102, end: 20090428

REACTIONS (8)
  - CEREBRAL ISCHAEMIA [None]
  - CEREBROVASCULAR ACCIDENT [None]
  - DEVICE RELATED INFECTION [None]
  - HEMIPARESIS [None]
  - KLEBSIELLA SEPSIS [None]
  - LUNG DISORDER [None]
  - SEPTIC SHOCK [None]
  - STAPHYLOCOCCAL INFECTION [None]
